FAERS Safety Report 7531542-8 (Version None)
Quarter: 2011Q2

REPORT INFORMATION
  Report Type: 
  Country: None (occurrence: None)
  Receive Date: 20110608
  Receipt Date: 20110601
  Transmission Date: 20111010
  Serious: Yes (Disabling)
  Sender: FDA-Public Use
  Company Number: BR-SANOFI-AVENTIS-2011SA034628

PATIENT
  Sex: Female
  Weight: 49 kg

DRUGS (3)
  1. HUMALOG [Suspect]
  2. NOVORAPID [Suspect]
  3. LANTUS [Suspect]
     Route: 058
     Dates: start: 20080101

REACTIONS (8)
  - TREMOR [None]
  - ASTHENIA [None]
  - HYPOGLYCAEMIA [None]
  - MEMORY IMPAIRMENT [None]
  - ARTHRITIS [None]
  - HUNGER [None]
  - HEADACHE [None]
  - PERIPHERAL COLDNESS [None]
